FAERS Safety Report 7705541-7 (Version None)
Quarter: 2011Q3

REPORT INFORMATION
  Report Type: 
  Country: None (occurrence: None)
  Receive Date: 20110818
  Receipt Date: 20110727
  Transmission Date: 20111222
  Serious: Yes (Hospitalization)
  Sender: FDA-Public Use
  Company Number: FK201101541

PATIENT
  Age: 78 Year
  Sex: Female

DRUGS (12)
  1. HYDROCODONE/PARACETAMOL (VICODIN) (VICODIN) [Concomitant]
  2. SIMVASTIN (SIMVASTIN) (SIMVASTIN) [Concomitant]
  3. SENNA (SENNA ALEXANDRINA) (SENNA ALEXANDRINA) [Concomitant]
  4. LORAZEPAM [Concomitant]
  5. DACARBAZINE [Suspect]
     Indication: METASTATIC MALIGNANT MELANOMA
     Dosage: 1810 MG, 1 IN 3 WK, INTRAVENOUS (NOT OTHERWISE SPECIFIED)
     Route: 042
     Dates: start: 20100728, end: 20100825
  6. PROCHLORPERAZINE MALEATE (PROCHLORPERAZINE MALEATE) (PROCHLORPERAZINE [Concomitant]
  7. TRAZODONE (TRAZODONE) (TRAZODONE) [Concomitant]
  8. DOCUSATE SODIUM (DOCUSATE SODIUM) (DOCUSATE SODIUM) [Concomitant]
  9. CALCIUM POLYCARBOPHIL (POLYCARBOPHIL CALCIUM) (POLYCARBOPHIL CALCIUM) [Concomitant]
  10. ONDANSETRON HCL (ONDANSETRON HYDROCHLORIDE) (ONDANSETRON HYDROCHLORIDE [Concomitant]
  11. MECLIZINE (MECLOZINE) (MECLOZINE) [Concomitant]
  12. MORPHINE [Concomitant]

REACTIONS (1)
  - PULMONARY EMBOLISM [None]
